FAERS Safety Report 7043459 (Version 2)
Quarter: 2014Q3

REPORT INFORMATION
  Report Type: Spontaneous
  Country: US (occurrence: None)
  Receive Date: 20090626
  Receipt Date: 20140916
  Transmission Date: 20150326
  Serious: Yes (Hospitalization, Other)
  Sender: FDA-Public Use
  Company Number: 2009S1004862

PATIENT
  Age: 55 Year
  Sex: Female
  Weight: 168.7 kg

DRUGS (9)
  1. IBUPROFEN (IBUPROFEN) [Concomitant]
     Active Substance: IBUPROFEN
  2. CEPHALEXIN (CEFALEXIN) [Concomitant]
     Active Substance: CEPHALEXIN
  3. AVANDIA (ROSIGLITAZONE MALEATE) [Concomitant]
  4. GLYBURIDE (GLIBENCLAMIDE) [Concomitant]
     Active Substance: GLYBURIDE
  5. PHOSPHO-SODA [Suspect]
     Active Substance: SODIUM PHOSPHATE, DIBASIC\SODIUM PHOSPHATE, MONOBASIC
     Indication: COLONOSCOPY
     Dosage: 90 ML; TOTAL; PO
     Route: 048
     Dates: start: 20040813, end: 20040813
  6. DARVOCET N (PARACETAMOL, DEXTROPROPOXYPHENE HYDROCHLORIDE) [Concomitant]
  7. METOPROLOL (METOPROLOL) [Concomitant]
     Active Substance: METOPROLOL
  8. DIOVAN/HCT (HYDROCHLOROTHIAZIDE, VALSARTAN) [Concomitant]
  9. CLOBETASOL (CLOBETASOL) [Concomitant]
     Active Substance: CLOBETASOL

REACTIONS (8)
  - Renal failure chronic [None]
  - Anaemia [None]
  - Fluid overload [None]
  - Renal transplant [None]
  - Dialysis [None]
  - Hyperparathyroidism secondary [None]
  - Renal failure [None]
  - Nephrogenic anaemia [None]

NARRATIVE: CASE EVENT DATE: 20041214
